FAERS Safety Report 6045005-2 (Version None)
Quarter: 2009Q1

REPORT INFORMATION
  Report Type: 
  Country: None (occurrence: None)
  Receive Date: 20090116
  Receipt Date: 20090116
  Transmission Date: 20090719
  Serious: Yes (Hospitalization)
  Sender: FDA-Public Use
  Company Number: None

PATIENT
  Sex: Female
  Weight: 57.6068 kg

DRUGS (14)
  1. BEVACIZUMAB (GENENTECH) - STUDY AGENT [Suspect]
     Indication: NON-SMALL CELL LUNG CANCER
     Dosage: 10MG/KG - IV Q2 WEEK
     Route: 042
     Dates: start: 20081217
  2. GEMCITABINE [Suspect]
     Dosage: 200MG/M2
     Dates: start: 20081217
  3. PACLITAXEL [Suspect]
     Dosage: 70MG/M2
     Dates: start: 20081217
  4. ADOXA [Concomitant]
  5. ADVAIR DISKUS 100/50 [Concomitant]
  6. AMBIEN [Concomitant]
  7. DIOVAN [Concomitant]
  8. SPIRIVA [Concomitant]
  9. SYNTHROID [Concomitant]
  10. ZOLOFT [Concomitant]
  11. ZOFRAN [Concomitant]
  12. DEXAMETHASONE [Concomitant]
  13. DIPHENHYDRAMINE HCL [Concomitant]
  14. RANITIDINE [Concomitant]

REACTIONS (4)
  - DYSARTHRIA [None]
  - DYSSTASIA [None]
  - GAIT DISTURBANCE [None]
  - TRANSIENT ISCHAEMIC ATTACK [None]
